FAERS Safety Report 9053397 (Version 4)
Quarter: 2015Q2

REPORT INFORMATION
  Report Type: Spontaneous
  Country: US (occurrence: US)
  Receive Date: 20130205
  Receipt Date: 20150610
  Transmission Date: 20150821
  Serious: Yes (Hospitalization, Other)
  Sender: FDA-Public Use
  Company Number: US-BAYER-2013-012174

PATIENT
  Age: 35 Year
  Sex: Female
  Weight: 54 kg

DRUGS (7)
  1. WARFARIN [Concomitant]
     Active Substance: WARFARIN
  2. SINGULAIR [Concomitant]
     Active Substance: MONTELUKAST SODIUM
  3. MIRENA [Suspect]
     Active Substance: LEVONORGESTREL
     Indication: CONTRACEPTION
     Dosage: 20 MCG/24HR, CONT
     Route: 015
     Dates: start: 20101104
  4. GALENIC /NEOMYCIN/POLYMYCIN B/ [Concomitant]
  5. AMOXICILLIN. [Concomitant]
     Active Substance: AMOXICILLIN
  6. GALENIC /NEOMYCIN/POLYMYCIN B/ [Concomitant]
  7. MIRENA [Suspect]
     Active Substance: LEVONORGESTREL
     Indication: CONTRACEPTION
     Dosage: 20 MCG/24HR, CONT
     Route: 015
     Dates: start: 200803, end: 20100909

REACTIONS (5)
  - Pain [None]
  - Genital haemorrhage [None]
  - Injury [None]
  - Embedded device [None]
  - Medical device complication [None]

NARRATIVE: CASE EVENT DATE: 2010
